FAERS Safety Report 7177889-9 (Version None)
Quarter: 2010Q4

REPORT INFORMATION
  Report Type: 
  Country: None (occurrence: None)
  Receive Date: 20101220
  Receipt Date: 20101216
  Transmission Date: 20110411
  Serious: Yes (Hospitalization)
  Sender: FDA-Public Use
  Company Number: GR-SANOFI-AVENTIS-2010SA064565

PATIENT
  Sex: Male

DRUGS (5)
  1. APIDRA [Suspect]
     Dosage: DOSE:25 UNIT(S)
     Dates: start: 20100501
  2. LANTUS [Concomitant]
     Dosage: DOSE:22 UNIT(S)
     Dates: start: 20090101
  3. OMACOR [Concomitant]
  4. SINTROM [Concomitant]
  5. GLUCOPHAGE [Concomitant]

REACTIONS (1)
  - INTERSTITIAL GRANULOMATOUS DERMATITIS [None]
